FAERS Safety Report 13409576 (Version 2)
Quarter: 2017Q4

REPORT INFORMATION
  Report Type: Spontaneous
  Country: US (occurrence: US)
  Receive Date: 20170406
  Receipt Date: 20171123
  Transmission Date: 20180320
  Serious: No
  Sender: FDA-Public Use
  Company Number: US-JNJFOC-20170127725

PATIENT
  Age: 8 Year
  Sex: Male

DRUGS (8)
  1. INVEGA [Suspect]
     Active Substance: PALIPERIDONE
     Indication: AFFECTIVE DISORDER
     Dosage: AT VARYING DOSE OF 3 MG AND UNSPECIFIED DOSE,
     Route: 048
     Dates: start: 20070328, end: 20151209
  2. RISPERDAL [Suspect]
     Active Substance: RISPERIDONE
     Indication: AFFECTIVE DISORDER
     Dosage: AT VARYING OF 0.5 MG AND UNSPECIFIED DOSE
     Route: 048
     Dates: start: 20050802, end: 20061202
  3. INVEGA [Suspect]
     Active Substance: PALIPERIDONE
     Indication: ANXIETY DISORDER
     Dosage: AT VARYING DOSE OF 3 MG AND UNSPECIFIED DOSE,
     Route: 048
     Dates: start: 20070328, end: 20151209
  4. RISPERDAL [Suspect]
     Active Substance: RISPERIDONE
     Indication: ANXIETY DISORDER
     Dosage: AT VARYING OF 0.5 MG AND UNSPECIFIED DOSE
     Route: 048
     Dates: start: 20050802, end: 20061202
  5. RISPERDAL [Suspect]
     Active Substance: RISPERIDONE
     Indication: ANXIETY DISORDER
     Route: 048
     Dates: end: 20070328
  6. INVEGA [Suspect]
     Active Substance: PALIPERIDONE
     Indication: ANXIETY DISORDER
     Route: 048
     Dates: start: 20050802
  7. RISPERDAL [Suspect]
     Active Substance: RISPERIDONE
     Indication: AFFECTIVE DISORDER
     Route: 048
     Dates: end: 20070328
  8. INVEGA [Suspect]
     Active Substance: PALIPERIDONE
     Indication: AFFECTIVE DISORDER
     Route: 048
     Dates: start: 20050802

REACTIONS (5)
  - Off label use [Unknown]
  - Gynaecomastia [Unknown]
  - Weight increased [Unknown]
  - Product use in unapproved indication [Unknown]
  - Emotional disorder [Unknown]

NARRATIVE: CASE EVENT DATE: 20050802
